FAERS Safety Report 18542131 (Version 1)
Quarter: 2020Q4

REPORT INFORMATION
  Report Type: Spontaneous
  Country: US (occurrence: US)
  Receive Date: 20201125
  Receipt Date: 20201125
  Transmission Date: 20210114
  Serious: Yes (Other)
  Sender: FDA-Public Use
  Company Number: US-GRANULES-US-2020GRALIT00057

PATIENT
  Age: 30 Year
  Sex: Male

DRUGS (2)
  1. COLCHICINE. [Suspect]
     Active Substance: COLCHICINE
     Indication: BEHCET^S SYNDROME
     Route: 065
  2. AZATHIOPRINE. [Concomitant]
     Active Substance: AZATHIOPRINE
     Indication: BEHCET^S SYNDROME
     Route: 065

REACTIONS (2)
  - Behcet^s syndrome [Unknown]
  - Toxicity to various agents [Unknown]
